FAERS Safety Report 23909406 (Version 1)
Quarter: 2024Q2

REPORT INFORMATION
  Report Type: Spontaneous
  Country: US (occurrence: US)
  Receive Date: 20240528
  Receipt Date: 20240528
  Transmission Date: 20240716
  Serious: No
  Sender: FDA-Public Use
  Company Number: US-PERRIGO-23US005956

PATIENT

DRUGS (1)
  1. MINOXIDIL [Suspect]
     Active Substance: MINOXIDIL
     Indication: Product used for unknown indication
     Dosage: UNKNOWN, SINGLE
     Route: 061
     Dates: start: 20230511, end: 20230511

REACTIONS (3)
  - Application site burn [Unknown]
  - Application site scab [Unknown]
  - Application site discharge [Unknown]

NARRATIVE: CASE EVENT DATE: 20230511
